FAERS Safety Report 25221274 (Version 1)
Quarter: 2025Q2

REPORT INFORMATION
  Report Type: Other
  Country: US (occurrence: US)
  Receive Date: 20250421
  Receipt Date: 20250421
  Transmission Date: 20250717
  Serious: Yes (Death, Other)
  Sender: B BRAUN
  Company Number: US-B.Braun Medical Inc.-2175287

PATIENT
  Age: 11 Year
  Sex: Female

DRUGS (5)
  1. ACETAMINOPHEN [Suspect]
     Active Substance: ACETAMINOPHEN
     Indication: Headache
  2. IBUPROFEN [Suspect]
     Active Substance: IBUPROFEN
  3. HYDROXYZINE [Suspect]
     Active Substance: HYDROXYZINE HYDROCHLORIDE
  4. SERTRALINE [Suspect]
     Active Substance: SERTRALINE HYDROCHLORIDE
  5. BUPROPION [Suspect]
     Active Substance: BUPROPION

REACTIONS (6)
  - Toxicity to various agents [Fatal]
  - Hyponatraemia [Fatal]
  - Hypoxia [Fatal]
  - Vomiting [Fatal]
  - Overdose [Fatal]
  - Seizure [Fatal]
